FAERS Safety Report 15139423 (Version 2)
Quarter: 2018Q3

REPORT INFORMATION
  Report Type: Spontaneous
  Country: IE (occurrence: IE)
  Receive Date: 20180713
  Receipt Date: 20180727
  Transmission Date: 20181010
  Serious: Yes (Death)
  Sender: FDA-Public Use
  Company Number: IE-009507513-1807IRL004644

PATIENT
  Age: 74 Year
  Sex: Female

DRUGS (6)
  1. MIRTAZAPINE. [Suspect]
     Active Substance: MIRTAZAPINE
     Dosage: UNK
  2. LYRICA [Interacting]
     Active Substance: PREGABALIN
     Dosage: UNK
  3. XANAX [Interacting]
     Active Substance: ALPRAZOLAM
     Dosage: UNK
  4. ALCOHOL. [Interacting]
     Active Substance: ALCOHOL
  5. QUETIAPINE FUMARATE. [Interacting]
     Active Substance: QUETIAPINE FUMARATE
     Route: 048
  6. ALPRAZOLAM. [Interacting]
     Active Substance: ALPRAZOLAM
     Dosage: UNK

REACTIONS (1)
  - Alcohol interaction [Fatal]

NARRATIVE: CASE EVENT DATE: 20161209
